FAERS Safety Report 5525699-8 (Version None)
Quarter: 2007Q4

REPORT INFORMATION
  Report Type: 
  Country: None (occurrence: None)
  Receive Date: 20071120
  Receipt Date: 20071120
  Transmission Date: 20080405
  Serious: Yes (Other)
  Sender: FDA-Public Use
  Company Number: None

PATIENT
  Age: 58 Year
  Sex: Female
  Weight: 81.6475 kg

DRUGS (1)
  1. NATURAL WHITE SENSITIVE TOOTHPASTE 4.5 OZ./128 G. LORNAMEAD BRANDS INC [Suspect]
     Dosage: 1 STRIPE ON BRUSH TWICE A DAY TOP
     Route: 061
     Dates: start: 20070401, end: 20070503

REACTIONS (5)
  - AGEUSIA [None]
  - HYPERSENSITIVITY [None]
  - MALAISE [None]
  - PAROSMIA [None]
  - PHARMACEUTICAL PRODUCT COMPLAINT [None]
